FAERS Safety Report 17812439 (Version 1)
Quarter: 2020Q2

REPORT INFORMATION
  Report Type: Spontaneous
  Country: BR (occurrence: BR)
  Receive Date: 20200521
  Receipt Date: 20200521
  Transmission Date: 20200714
  Serious: Yes (Other)
  Sender: FDA-Public Use
  Company Number: BR-PFIZER INC-2020197763

PATIENT
  Age: 75 Year
  Sex: Female

DRUGS (1)
  1. EFEXOR XR [Suspect]
     Active Substance: VENLAFAXINE HYDROCHLORIDE
     Indication: DEPRESSION
     Dosage: UNK

REACTIONS (7)
  - Erythema [Unknown]
  - Urinary incontinence [Unknown]
  - Haemorrhage [Unknown]
  - Menstrual disorder [Unknown]
  - Pruritus [Unknown]
  - Crying [Unknown]
  - Depression [Unknown]
